FAERS Safety Report 24850071 (Version 3)
Quarter: 2025Q2

REPORT INFORMATION
  Report Type: Report from Study
  Country: US (occurrence: US)
  Receive Date: 20250116
  Receipt Date: 20250606
  Transmission Date: 20250717
  Serious: Yes (Hospitalization, Other)
  Sender: ABBVIE
  Company Number: US-ABBVIE-6081740

PATIENT
  Age: 70 Year
  Sex: Male

DRUGS (1)
  1. CREON [Suspect]
     Active Substance: PANCRELIPASE AMYLASE\PANCRELIPASE LIPASE\PANCRELIPASE PROTEASE
     Indication: Product used for unknown indication
     Route: 048
     Dates: start: 20241204, end: 20250326

REACTIONS (6)
  - Pancreatic carcinoma [Unknown]
  - Abdominal pain upper [Unknown]
  - Flatulence [Unknown]
  - Steatorrhoea [Unknown]
  - Pancreatic neoplasm [Recovered/Resolved]
  - Pancreatic duct obstruction [Recovered/Resolved]
